FAERS Safety Report 4498631-6 (Version None)
Quarter: 2004Q4

REPORT INFORMATION
  Report Type: 
  Country: None (occurrence: None)
  Receive Date: 20041111
  Receipt Date: 20040707
  Transmission Date: 20050328
  Serious: Yes (Hospitalization)
  Sender: FDA-Public Use
  Company Number: PHBS2004JP09203

PATIENT
  Age: 67 Year
  Sex: Female
  Weight: 51 kg

DRUGS (8)
  1. PARLODEL [Suspect]
     Indication: PARKINSONISM
     Dosage: 2.5 MG, QD
     Route: 048
     Dates: start: 19951101, end: 19960305
  2. PARLODEL [Suspect]
     Dosage: 2.5 MG, BID
     Route: 048
     Dates: start: 19960306, end: 19960710
  3. SYMMETREL [Suspect]
     Indication: PARKINSONISM
     Dosage: 50 MG, BID
     Route: 048
     Dates: start: 19951206, end: 19960710
  4. TRIHEXYPHENIDYL HYDROCHLORIDE [Suspect]
     Indication: PARKINSONISM
     Dosage: 2 MG, QD
     Route: 048
     Dates: start: 19960410, end: 20040618
  5. LEVODOPA W/BENSERAZIDE/ [Suspect]
     Indication: PARKINSONISM
     Route: 048
     Dates: start: 19950101, end: 19950101
  6. TALIPEXOLE [Suspect]
     Route: 048
     Dates: start: 19950101, end: 19950101
  7. CARBIDOPA [Suspect]
     Route: 048
     Dates: start: 19950101, end: 19950101
  8. NEODOPASOL [Concomitant]
     Indication: PARKINSON'S DISEASE
     Dosage: 100 MG, BID
     Route: 048
     Dates: start: 19960618, end: 19960701

REACTIONS (12)
  - CEREBELLAR ATROPHY [None]
  - CEREBRAL ATROPHY [None]
  - CONSTIPATION [None]
  - DIFFICULTY IN WALKING [None]
  - DRUG INTERACTION [None]
  - DYSSTASIA [None]
  - DYSTONIA [None]
  - FALL [None]
  - HEAD INJURY [None]
  - MICTURITION DISORDER [None]
  - PARKINSONISM [None]
  - TORTICOLLIS [None]
